FAERS Safety Report 23551456 (Version 4)
Quarter: 2024Q3

REPORT INFORMATION
  Report Type: Spontaneous
  Country: IT (occurrence: IT)
  Receive Date: 20240222
  Receipt Date: 20240720
  Transmission Date: 20241017
  Serious: Yes (Other)
  Sender: CELLTRION
  Company Number: IT-CELLTRION INC.-2021IT008292

PATIENT

DRUGS (49)
  1. TRASTUZUMAB [Suspect]
     Active Substance: TRASTUZUMAB
     Indication: HER2 positive breast cancer
     Dosage: 8 MG/KG; MOST RECENT DOSE PRIOR TO THE EVENT: 24/FEB/2017
     Route: 042
     Dates: start: 20170131, end: 20170131
  2. TRASTUZUMAB [Suspect]
     Active Substance: TRASTUZUMAB
     Dosage: 6 MG/KG EVERY 3 WEEKS; MOST RECENT DOSE OF IV TRASTUZUMAB: 28/NOV/2017
     Route: 042
     Dates: start: 20170224, end: 20171128
  3. TRASTUZUMAB [Suspect]
     Active Substance: TRASTUZUMAB
     Dosage: 600 MG EVERY 3 WEEKS; MOST RECENT DOSE OF IV TRASTUZUMAB: 17/AUG/2018
     Route: 042
     Dates: start: 20180727, end: 20180817
  4. TRASTUZUMAB [Suspect]
     Active Substance: TRASTUZUMAB
     Dosage: 6 MG/KG EVERY 3 WEEKS
     Route: 042
     Dates: start: 20180811, end: 20181009
  5. EXEMESTANE [Suspect]
     Active Substance: EXEMESTANE
     Indication: HER2 positive breast cancer
     Dosage: 25 MILLIGRAM, QD, DATE OF MOST RENCET DOSE: 19/DEC/2017
     Route: 048
     Dates: start: 20170726, end: 20171219
  6. EXEMESTANE [Suspect]
     Active Substance: EXEMESTANE
     Indication: Breast cancer
  7. PERTUZUMAB [Suspect]
     Active Substance: PERTUZUMAB
     Indication: HER2 positive breast cancer
     Dosage: 420 MG, EVERY 3 WEEKS, MOST RECENT DOSE OF IV PERTUZUMAB: 28/NOV/2017, 8MG/ KG
     Route: 042
     Dates: start: 20170224, end: 20171128
  8. PERTUZUMAB [Suspect]
     Active Substance: PERTUZUMAB
     Dosage: 840 MG, EVERY 3 WEEK, MOST RECENT DOSE PRIOR TO THE EVENT: 24/FEB/2017
     Route: 042
     Dates: start: 20170131, end: 20170131
  9. PERTUZUMAB [Suspect]
     Active Substance: PERTUZUMAB
     Dosage: 420 MG, EVERY 3 WEEKS,
     Route: 042
     Dates: start: 20170131, end: 20170224
  10. PACLITAXEL [Suspect]
     Active Substance: PACLITAXEL
     Indication: Breast cancer
     Dosage: 110 MG, EVERY 1 WEEK, 110 MILLIGRAM/SQ. METER, QWK 85MG/M2, MOST RECENT DOSE PRIOR TO THE EVENT: 05/
     Route: 042
     Dates: start: 20170131, end: 20170210
  11. PACLITAXEL [Suspect]
     Active Substance: PACLITAXEL
     Indication: HER2 positive breast cancer
     Dosage: 110 MG, EVERY 1 WEEK, 110 MILLIGRAM/SQ. METER, QWK
     Route: 042
     Dates: start: 20170210
  12. PACLITAXEL [Suspect]
     Active Substance: PACLITAXEL
     Dosage: 80 MILLIGRAM/SQ. METER
     Route: 042
     Dates: start: 20170224
  13. PACLITAXEL [Suspect]
     Active Substance: PACLITAXEL
     Dosage: 85 MILLIGRAM/SQ. METER, QWK
     Route: 042
     Dates: start: 20170418
  14. PACLITAXEL [Suspect]
     Active Substance: PACLITAXEL
     Dosage: 95 MG, 1/WEEK
     Route: 048
     Dates: start: 20170426, end: 20170628
  15. PACLITAXEL [Suspect]
     Active Substance: PACLITAXEL
     Dosage: 85 MILLIGRAM/SQ. METER, QWK
     Route: 048
     Dates: start: 20170705, end: 20170719
  16. PACLITAXEL [Suspect]
     Active Substance: PACLITAXEL
     Dosage: 115 MG, 1/WEEK
     Route: 048
     Dates: start: 20170224, end: 20170403
  17. CAPECITABINE [Suspect]
     Active Substance: CAPECITABINE
     Indication: HER2 positive breast cancer
     Dosage: 1500 MG, EVERY 0.5 DAY, MOST RECENT DOSE ON 19/JAN/2018
     Route: 048
     Dates: start: 20171220, end: 20180108
  18. CAPECITABINE [Suspect]
     Active Substance: CAPECITABINE
     Indication: Breast cancer
     Dosage: 1500 MG, MOST RECENT DOSE OF CAPECITABINE: 19/JAN/2018; FOR 14 DAYS EVERY
     Route: 048
     Dates: start: 20180119, end: 20180709
  19. LAPATINIB [Suspect]
     Active Substance: LAPATINIB
     Indication: HER2 positive breast cancer
     Dosage: 250 MG, EVERY 0.2 DAY, FIVE TIMES A DAY, MOST RECENT DOSE PRIOR TO THE EVENT: 30/MAR/2018
     Route: 048
     Dates: start: 20171219, end: 20180108
  20. LAPATINIB [Suspect]
     Active Substance: LAPATINIB
     Indication: Breast cancer
     Dosage: 250 MG, 3 WEEK TWICE A DAY
     Route: 048
     Dates: start: 20180216, end: 20180222
  21. LAPATINIB [Suspect]
     Active Substance: LAPATINIB
     Dosage: 250 MG, EVERY 0.33 DAY, MOST RECENT DOSE OF LAPATINIB: 02/MAR/2018, THREE TIMES A DAY
     Route: 048
     Dates: start: 20180223, end: 20180302
  22. LAPATINIB [Suspect]
     Active Substance: LAPATINIB
     Dosage: 250 MG, EVERY 0.5 DAY, MOST RECENT DOSE OF LAPATINIB: 22/FEB/2018
     Route: 048
     Dates: start: 20180216
  23. LAPATINIB [Suspect]
     Active Substance: LAPATINIB
     Dosage: 250 MG, EVERY 0.33 DAY, MOST RECENT DOSE OF LAPATINIB: 20/JUL/2018
     Route: 048
     Dates: start: 20180303, end: 20180720
  24. LAPATINIB [Suspect]
     Active Substance: LAPATINIB
     Dosage: 250 MG, FOUR TIMES
     Route: 048
     Dates: start: 201803, end: 201803
  25. LAPATINIB [Suspect]
     Active Substance: LAPATINIB
     Dosage: 250 MG, EVERY 3 WEEK, FOUR TIME A DAY
     Route: 048
     Dates: start: 20180303, end: 201803
  26. LAPATINIB [Suspect]
     Active Substance: LAPATINIB
     Dosage: MOST RECENT DOSE OF LAPATINIB: /MAR/2018
     Route: 048
     Dates: start: 201803
  27. LAPATINIB [Suspect]
     Active Substance: LAPATINIB
     Dosage: MOST RECENT DOSE OF LAPATINIB: /MAR/2018
     Route: 048
     Dates: start: 20180303
  28. VINORELBINE [Suspect]
     Active Substance: VINORELBINE TARTRATE
     Indication: Breast cancer
     Dosage: 80 MG/M2, MOST RECENT DOSE OF VINORELBINE: 06/NOV/2018
     Route: 048
     Dates: start: 20180911
  29. VINORELBINE [Suspect]
     Active Substance: VINORELBINE TARTRATE
     Dosage: 60 MG/M2, EVERY 3 WEEK, 60 MILLIGRAM/SQ. METER, Q3WK
     Route: 048
     Dates: start: 20180727, end: 20180817
  30. VINORELBINE [Suspect]
     Active Substance: VINORELBINE TARTRATE
     Dosage: 80 MG, EVERY 3 WEEK
     Route: 048
     Dates: end: 20180911
  31. VINORELBINE [Suspect]
     Active Substance: VINORELBINE TARTRATE
     Dosage: 80 MG
     Route: 048
     Dates: end: 20181106
  32. AROMASIN [Suspect]
     Active Substance: EXEMESTANE
     Indication: Breast cancer
     Dosage: 25 MG, EVERY 1 DAY, 25 MILLIGRAM, 1 DAY DATE OF MOST RENCET DOSE: 19/DEC/2017
     Route: 048
     Dates: start: 20170726, end: 20171219
  33. SERTRALINE [Concomitant]
     Active Substance: SERTRALINE HYDROCHLORIDE
     Indication: Product used for unknown indication
     Route: 065
  34. XANAX [Concomitant]
     Active Substance: ALPRAZOLAM
     Indication: Product used for unknown indication
     Dosage: 1 DF
     Route: 042
     Dates: start: 20170131
  35. CHOLECALCIFEROL [Concomitant]
     Active Substance: CHOLECALCIFEROL
     Dosage: UNK
     Route: 065
     Dates: start: 20170726
  36. CHOLECALCIFEROL [Concomitant]
     Active Substance: CHOLECALCIFEROL
     Dosage: UNK
     Route: 065
     Dates: start: 20170726
  37. DENOSUMAB [Concomitant]
     Active Substance: DENOSUMAB
     Dosage: UNK
     Route: 065
     Dates: start: 20170823, end: 20180727
  38. MEDROL [Concomitant]
     Active Substance: METHYLPREDNISOLONE
     Dosage: UNK
     Route: 065
     Dates: start: 20180725, end: 20180731
  39. MEDROL [Concomitant]
     Active Substance: METHYLPREDNISOLONE
     Dosage: UNK
     Route: 065
     Dates: start: 20180720, end: 20180724
  40. AMLODIPINE BESYLATE\OLMESARTAN MEDOXOMIL [Concomitant]
     Active Substance: AMLODIPINE BESYLATE\OLMESARTAN MEDOXOMIL
     Dosage: UNK
     Route: 065
     Dates: start: 20171004
  41. BECLOMETHASONE DIPROPIONATE [Concomitant]
     Active Substance: BECLOMETHASONE DIPROPIONATE
     Indication: Product used for unknown indication
     Dosage: UNK
     Route: 065
     Dates: start: 20170702, end: 20170705
  42. AMBROXOL HYDROCHLORIDE [Concomitant]
     Active Substance: AMBROXOL HYDROCHLORIDE
     Indication: Product used for unknown indication
     Dosage: UNK
     Route: 065
     Dates: start: 20170702, end: 20170705
  43. IMODIUM [Concomitant]
     Active Substance: LOPERAMIDE HYDROCHLORIDE
     Indication: Product used for unknown indication
     Dosage: UNK
     Route: 065
     Dates: start: 20170705, end: 20170821
  44. RACECADOTRIL [Concomitant]
     Active Substance: RACECADOTRIL
     Indication: Diarrhoea
     Dosage: UNK
     Route: 065
     Dates: start: 20170531
  45. RACECADOTRIL [Concomitant]
     Active Substance: RACECADOTRIL
     Dosage: UNK
     Route: 065
     Dates: start: 20170705, end: 20170726
  46. CLENIL [BECLOMETASONE DIPROPIONATE] [Concomitant]
     Dosage: UNK
     Route: 065
  47. ZOFRAN [Concomitant]
     Active Substance: ONDANSETRON HYDROCHLORIDE
     Route: 065
  48. GABAPENTIN [Concomitant]
     Active Substance: GABAPENTIN
     Route: 065
  49. BETAMETHASONE SODIUM PHOSPHATE [Concomitant]
     Active Substance: BETAMETHASONE SODIUM PHOSPHATE
     Route: 065

REACTIONS (13)
  - Hypokalaemia [Recovered/Resolved]
  - Hypokalaemia [Recovered/Resolved]
  - Hypokalaemia [Recovered/Resolved]
  - Cough [Recovered/Resolved]
  - Diarrhoea [Recovered/Resolved]
  - Malaise [Recovered/Resolved]
  - Leukopenia [Recovered/Resolved]
  - Paraesthesia [Recovered/Resolved]
  - Diarrhoea [Recovered/Resolved]
  - Diarrhoea [Recovered/Resolved]
  - Asthenia [Recovered/Resolved]
  - Overdose [Unknown]
  - Product use issue [Unknown]

NARRATIVE: CASE EVENT DATE: 20170418
